FAERS Safety Report 7155984-8 (Version None)
Quarter: 2010Q4

REPORT INFORMATION
  Report Type: 
  Country: None (occurrence: None)
  Receive Date: 20101214
  Receipt Date: 20101202
  Transmission Date: 20110411
  Serious: Yes (Hospitalization)
  Sender: FDA-Public Use
  Company Number: US-PFIZER INC-2010153768

PATIENT
  Sex: Female
  Weight: 74.83 kg

DRUGS (12)
  1. RELISTOR [Suspect]
     Indication: FAECALOMA
     Dosage: 12 MG EVERY OTHER DAY
     Route: 058
     Dates: start: 20100901
  2. RELISTOR [Suspect]
     Indication: ABDOMINAL DISTENSION
  3. RELISTOR [Suspect]
     Indication: CONSTIPATION
  4. SENOKOT [Suspect]
     Indication: BOWEL PREPARATION
     Dosage: ONCE
     Dates: start: 20100927, end: 20100927
  5. MIRALAX [Suspect]
     Indication: BOWEL PREPARATION
     Dosage: ONCE
     Dates: start: 20100927, end: 20100927
  6. MINERAL OIL [Suspect]
     Indication: BOWEL PREPARATION
     Dosage: ONCE
     Dates: start: 20100927, end: 20100927
  7. STOOL SOFTENER [Suspect]
     Indication: BOWEL PREPARATION
     Dosage: ONCE
     Dates: start: 20100927, end: 20100927
  8. GOLYTELY [Suspect]
     Indication: BOWEL PREPARATION
     Dosage: ONCE
     Dates: start: 20100927, end: 20100927
  9. OXYCONTIN [Concomitant]
     Indication: PAIN
  10. MORPHINE SULFATE [Concomitant]
     Indication: PAIN
  11. KLONOPIN [Concomitant]
  12. SYNTHROID [Concomitant]
     Indication: THYROID DISORDER

REACTIONS (8)
  - COLPOCELE [None]
  - CONSTIPATION [None]
  - DRUG INEFFECTIVE [None]
  - FATIGUE [None]
  - HERNIA REPAIR [None]
  - MEDICAL DIET [None]
  - PERFORATION BILE DUCT [None]
  - VOMITING [None]
